FAERS Safety Report 14308469 (Version 2)
Quarter: 2018Q1

REPORT INFORMATION
  Report Type: Report from Study
  Country: CA (occurrence: CA)
  Receive Date: 20171220
  Receipt Date: 20180215
  Transmission Date: 20180509
  Serious: Yes (Death)
  Sender: FDA-Public Use
  Company Number: PHHY2017CA136593

PATIENT
  Age: 80 Year
  Sex: Male

DRUGS (2)
  1. OCTREOTIDE. [Suspect]
     Active Substance: OCTREOTIDE
     Indication: CARCINOID TUMOUR
     Dosage: TEST DOSE
     Route: 058
     Dates: start: 20170901, end: 20170901
  2. SANDOSTATIN LAR DEPOT [Suspect]
     Active Substance: OCTREOTIDE ACETATE
     Indication: CARCINOID TUMOUR
     Dosage: 30 MG, QMO (EVERY 4 WEEKS)
     Route: 030
     Dates: start: 20170919

REACTIONS (3)
  - Syringe issue [Unknown]
  - Death [Fatal]
  - Product quality issue [Unknown]

NARRATIVE: CASE EVENT DATE: 20171214
